FAERS Safety Report 18947424 (Version 2)
Quarter: 2021Q1

REPORT INFORMATION
  Report Type: Spontaneous
  Country: GR (occurrence: GR)
  Receive Date: 20210226
  Receipt Date: 20210303
  Transmission Date: 20210420
  Serious: Yes (Other)
  Sender: FDA-Public Use
  Company Number: GR-UCBSA-2021008316

PATIENT
  Age: 63 Year
  Sex: Female
  Weight: 47 kg

DRUGS (13)
  1. ATARAX [Suspect]
     Active Substance: HYDROXYZINE HYDROCHLORIDE
     Indication: ACNE
  2. PROPIOCHRONE [Suspect]
     Active Substance: BETAMETHASONE DIPROPIONATE\BETAMETHASONE SODIUM PHOSPHATE
     Indication: SWELLING
     Dosage: UNK
     Dates: start: 202101
  3. BILASTINE [Suspect]
     Active Substance: BILASTINE
     Indication: SYSTEMIC SCLERODERMA
  4. ATARAX [Suspect]
     Active Substance: HYDROXYZINE HYDROCHLORIDE
     Indication: SYSTEMIC SCLERODERMA
  5. PROPIOCHRONE [Suspect]
     Active Substance: BETAMETHASONE DIPROPIONATE\BETAMETHASONE SODIUM PHOSPHATE
     Indication: SYSTEMIC SCLERODERMA
  6. BILASTINE [Suspect]
     Active Substance: BILASTINE
     Indication: SWELLING
     Dosage: UNK, REPORTED AS BILASTINE (BILAZ)
  7. XOZAL [Suspect]
     Active Substance: LEVOCETIRIZINE
     Indication: SYSTEMIC SCLERODERMA
     Dosage: UNK
  8. XOZAL [Suspect]
     Active Substance: LEVOCETIRIZINE
     Indication: ACNE
  9. XOZAL [Suspect]
     Active Substance: LEVOCETIRIZINE
     Indication: SWELLING
  10. BILASTINE [Suspect]
     Active Substance: BILASTINE
     Indication: ACNE
  11. ATARAX [Suspect]
     Active Substance: HYDROXYZINE HYDROCHLORIDE
     Indication: SWELLING
     Dosage: UNK
  12. AUGMENTINE [AMOXICILLIN;CLAVULANIC ACID] [Suspect]
     Active Substance: AMOXICILLIN\CLAVULANIC ACID
     Indication: FUNGAL INFECTION
     Dosage: UNK
  13. PROPIOCHRONE [Suspect]
     Active Substance: BETAMETHASONE DIPROPIONATE\BETAMETHASONE SODIUM PHOSPHATE
     Indication: ACNE

REACTIONS (21)
  - Inflammation [Not Recovered/Not Resolved]
  - Chest discomfort [Not Recovered/Not Resolved]
  - Chromaturia [Not Recovered/Not Resolved]
  - Muscular weakness [Not Recovered/Not Resolved]
  - Swelling [Not Recovered/Not Resolved]
  - Insomnia [Not Recovered/Not Resolved]
  - Vomiting [Not Recovered/Not Resolved]
  - Dizziness [Not Recovered/Not Resolved]
  - Decreased appetite [Not Recovered/Not Resolved]
  - Dyspnoea [Not Recovered/Not Resolved]
  - Anxiety [Not Recovered/Not Resolved]
  - Constipation [Recovered/Resolved]
  - Memory impairment [Not Recovered/Not Resolved]
  - Product use in unapproved indication [Unknown]
  - Mood altered [Not Recovered/Not Resolved]
  - Burning sensation [Not Recovered/Not Resolved]
  - Pruritus [Not Recovered/Not Resolved]
  - Myosclerosis [Not Recovered/Not Resolved]
  - Abdominal distension [Recovered/Resolved]
  - Erythema [Not Recovered/Not Resolved]
  - Headache [Not Recovered/Not Resolved]

NARRATIVE: CASE EVENT DATE: 202101
